FAERS Safety Report 16431694 (Version 1)
Quarter: 2019Q2

REPORT INFORMATION
  Report Type: Spontaneous
  Country: US (occurrence: US)
  Receive Date: 20190614
  Receipt Date: 20190614
  Transmission Date: 20190711
  Serious: No
  Sender: FDA-Public Use
  Company Number: US-HORIZON-PRE-0242-2019

PATIENT
  Age: 67 Year
  Sex: Male

DRUGS (3)
  1. PREDNISONE. [Suspect]
     Active Substance: PREDNISONE
     Indication: GASTROINTESTINAL DISORDER
  2. REMODULIN [Suspect]
     Active Substance: TREPROSTINIL
     Indication: PULMONARY ARTERIAL HYPERTENSION
     Dosage: 26 NG/KG/MIN CONTINUOUSLY SUBCUTANEOUSLY
     Route: 058
     Dates: start: 20180806
  3. ENTYVIO [Concomitant]
     Active Substance: VEDOLIZUMAB

REACTIONS (5)
  - Abdominal distension [Unknown]
  - Fluid retention [Unknown]
  - Flushing [Unknown]
  - Feeling abnormal [Unknown]
  - Infusion site nodule [Unknown]

NARRATIVE: CASE EVENT DATE: 201905
